FAERS Safety Report 6736114-0 (Version None)
Quarter: 2010Q2

REPORT INFORMATION
  Report Type: 
  Country: None (occurrence: None)
  Receive Date: 20100521
  Receipt Date: 20100511
  Transmission Date: 20101027
  Serious: Yes (Other)
  Sender: FDA-Public Use
  Company Number: US-PFIZER INC-2010044763

PATIENT
  Sex: Female
  Weight: 92.517 kg

DRUGS (7)
  1. LYRICA [Suspect]
     Indication: NERVE INJURY
     Dosage: 200 MG, DAILY
     Dates: start: 20100101
  2. LISINOPRIL [Concomitant]
     Indication: BLOOD PRESSURE
     Dosage: UNK
  3. XANAX [Concomitant]
     Dosage: UNK
  4. PRISTIQ [Concomitant]
     Indication: DEPRESSION
     Dosage: UNK
  5. IBUPROFEN [Concomitant]
     Indication: GASTRIC DISORDER
     Dosage: UNK
  6. PROTONIX [Concomitant]
     Indication: GASTRIC DISORDER
     Dosage: UNK
  7. VICODIN [Concomitant]
     Dosage: 750 MG, UNK

REACTIONS (1)
  - WITHDRAWAL SYNDROME [None]
